FAERS Safety Report 8672402 (Version 9)
Quarter: 2013Q1

REPORT INFORMATION
  Report Type: Spontaneous
  Country: US (occurrence: US)
  Receive Date: 20120719
  Receipt Date: 20130128
  Transmission Date: 20140127
  Serious: Yes (Other)
  Sender: FDA-Public Use
  Company Number: US-AMGEN-USASP2012038663

PATIENT
  Age: 65 Year
  Sex: Female

DRUGS (30)
  1. PROLIA [Suspect]
     Indication: OSTEOPOROSIS POSTMENOPAUSAL
     Dosage: 60 MG, Q6MO
     Route: 058
     Dates: start: 20110901
  2. PREDNISONE [Concomitant]
     Dosage: UNK
     Dates: start: 201203
  3. PRAMIPEXOLE [Concomitant]
     Dosage: 0.5 MG, QD
     Dates: start: 20120706
  4. OMEPRAZOLE [Concomitant]
     Dosage: 20 MG, QD
     Route: 048
     Dates: start: 20120706
  5. OXYCONTIN [Concomitant]
     Dosage: 60 MG, TID
     Route: 048
     Dates: start: 20120226
  6. NYSTATIN [Concomitant]
     Dosage: 100000 IU, PRN
     Route: 061
     Dates: start: 20120130
  7. CLOTRIMAZOLE AF [Concomitant]
     Dosage: 1 %, BID
     Route: 061
     Dates: start: 20111021
  8. FLEXERIL                           /00428402/ [Concomitant]
     Dosage: 10 MG, Q8H
     Route: 048
     Dates: start: 20110715
  9. VIACTIV                            /00751501/ [Concomitant]
     Dosage: UNK UNK, BID
     Dates: start: 20110714
  10. VITAMIN D3 [Concomitant]
     Dosage: 3000 IU, TID
     Dates: start: 20110714
  11. VOLTAREN                           /00372301/ [Concomitant]
     Indication: OSTEOARTHRITIS
     Dosage: 1 %, QD
     Route: 061
     Dates: start: 20110615
  12. TOFRANIL [Concomitant]
     Indication: HEADACHE
     Dosage: 50 MG, QHS
     Route: 048
     Dates: start: 20110527
  13. MECLIZINE                          /00072801/ [Concomitant]
     Indication: DIZZINESS
     Dosage: 25 MG, TID
     Route: 048
     Dates: start: 20110527
  14. TRAMADOL [Concomitant]
     Indication: HEADACHE
     Dosage: 50 MG, QD
     Route: 048
     Dates: start: 20110507
  15. PEPCID                             /00706001/ [Concomitant]
     Dosage: 20 MG, BID
     Route: 048
     Dates: start: 20110406
  16. ASPIRIN [Concomitant]
     Dosage: 81 MG, QD
     Route: 048
     Dates: start: 20110202
  17. AMLODIPINE [Concomitant]
     Dosage: 5 MG, BID
     Route: 048
     Dates: start: 20110202
  18. ZOFRAN                             /00955301/ [Concomitant]
     Dosage: 4 MG, PRN
     Route: 048
     Dates: start: 20110130
  19. POTASSIUM CHLORIDE [Concomitant]
     Dosage: 20 MEQ, QD
     Route: 048
     Dates: start: 20101111
  20. KLONOPIN [Concomitant]
     Dosage: 2 MG, QHS
     Route: 048
     Dates: start: 20101111
  21. AMBIEN [Concomitant]
     Dosage: 10 MG, PRN
     Route: 048
     Dates: start: 20101022
  22. IMITREX                            /01044801/ [Concomitant]
     Indication: MIGRAINE
     Dosage: UNK UNK, PRN
     Route: 058
     Dates: start: 20011024
  23. CITALOPRAM [Concomitant]
     Dosage: UNK
     Dates: start: 20120420
  24. ONDANSETRON [Concomitant]
     Dosage: UNK
     Dates: start: 20120420
  25. TIOTROPIUM [Concomitant]
     Indication: CHRONIC OBSTRUCTIVE PULMONARY DISEASE
  26. SIMBICORT TURBUHALER [Concomitant]
     Indication: CHRONIC OBSTRUCTIVE PULMONARY DISEASE
  27. SIMBICORT TURBUHALER [Concomitant]
     Indication: ASTHMA
  28. AZITHROMYCIN [Concomitant]
  29. ALBUTEROL                          /00139501/ [Concomitant]
     Indication: ASTHMA
  30. AUGMENTIN                          /00756801/ [Concomitant]

REACTIONS (13)
  - Exposed bone in jaw [Recovered/Resolved]
  - Tooth loss [Not Recovered/Not Resolved]
  - Loose tooth [Not Recovered/Not Resolved]
  - Mouth ulceration [Unknown]
  - Oral candidiasis [Unknown]
  - Stomatitis [Unknown]
  - Tooth discolouration [Unknown]
  - Hypoaesthesia [Unknown]
  - Tooth fracture [Unknown]
  - Device failure [Unknown]
  - Gingival bleeding [Unknown]
  - Breath odour [Unknown]
  - Dysgeusia [Unknown]
